FAERS Safety Report 10442764 (Version 1)
Quarter: 2014Q3

REPORT INFORMATION
  Report Type: Spontaneous
  Country: US (occurrence: US)
  Receive Date: 20140909
  Receipt Date: 20140909
  Transmission Date: 20150326
  Serious: Yes (Disabling, Other)
  Sender: FDA-Public Use
  Company Number: US-TAKEDA-2014MPI002370

PATIENT
  Age: 61 Year
  Sex: Female

DRUGS (6)
  1. VELCADE [Suspect]
     Active Substance: BORTEZOMIB
     Indication: POLYCYTHAEMIA
     Dosage: 1.0 MG/M2, UNK
     Route: 058
  2. VELCADE [Suspect]
     Active Substance: BORTEZOMIB
     Indication: VENTILATION PERFUSION MISMATCH
  3. VELCADE [Suspect]
     Active Substance: BORTEZOMIB
     Indication: TELANGIECTASIA
     Dosage: 1.3 MG/M2, ON DAYS 1,4,8,11 AND 21
     Route: 058
  4. VELCADE [Suspect]
     Active Substance: BORTEZOMIB
     Indication: PERINEPHRIC COLLECTION
  5. VELCADE [Suspect]
     Active Substance: BORTEZOMIB
     Indication: BLOOD ERYTHROPOIETIN INCREASED
  6. VELCADE [Suspect]
     Active Substance: BORTEZOMIB
     Indication: MONOCLONAL GAMMOPATHY

REACTIONS (4)
  - Radiculopathy [Recovered/Resolved]
  - Neuropathy peripheral [Recovered/Resolved]
  - Off label use [Unknown]
  - Therapeutic response changed [Unknown]
